FAERS Safety Report 19675210 (Version 1)
Quarter: 2021Q3

REPORT INFORMATION
  Report Type: Spontaneous
  Country: CA (occurrence: CA)
  Receive Date: 20210809
  Receipt Date: 20210809
  Transmission Date: 20211014
  Serious: Yes (Hospitalization)
  Sender: FDA-Public Use
  Company Number: CA-TEVA-2021-CA-1939256

PATIENT
  Sex: Female

DRUGS (15)
  1. ATORVASTATIN [Concomitant]
     Active Substance: ATORVASTATIN
  2. METFORMIN [Concomitant]
     Active Substance: METFORMIN HYDROCHLORIDE
  3. METOPROLOL. [Concomitant]
     Active Substance: METOPROLOL
     Route: 065
  4. VITAMIN D [Concomitant]
     Active Substance: VITAMIN D NOS
  5. APIXABAN [Concomitant]
     Active Substance: APIXABAN
  6. MUPIROCIN. [Concomitant]
     Active Substance: MUPIROCIN
  7. NYADERM CRM 100000UNIT/GM [Concomitant]
  8. CLOPIDOGREL [Concomitant]
     Active Substance: CLOPIDOGREL BISULFATE
  9. FERAMAX [Concomitant]
     Active Substance: IRON\POLYSACCHARIDES
  10. LEVOTHYROXINE. [Concomitant]
     Active Substance: LEVOTHYROXINE
  11. NITRO SPRAY [Concomitant]
     Active Substance: NITROGLYCERIN
  12. BETADERM [Concomitant]
     Active Substance: BETAMETHASONE VALERATE
  13. PERINDOPRIL [Concomitant]
     Active Substance: PERINDOPRIL
  14. PANTOPRAZOLE [Suspect]
     Active Substance: PANTOPRAZOLE
     Indication: GASTROINTESTINAL DISORDER PROPHYLAXIS
     Route: 065
  15. MULTIVITAMINE(S) [Concomitant]
     Active Substance: VITAMINS

REACTIONS (5)
  - Diarrhoea [Unknown]
  - Hypomagnesaemia [Unknown]
  - Hypophosphataemia [Unknown]
  - Paraesthesia [Unknown]
  - Hypokalaemia [Unknown]
